FAERS Safety Report 6487410-6 (Version None)
Quarter: 2009Q4

REPORT INFORMATION
  Report Type: 
  Country: None (occurrence: None)
  Receive Date: 20091209
  Receipt Date: 20091209
  Transmission Date: 20100525
  Serious: Yes (Hospitalization)
  Sender: FDA-Public Use
  Company Number: None

PATIENT
  Sex: Female
  Weight: 94.5 kg

DRUGS (5)
  1. PHENTERMINE [Suspect]
     Indication: WEIGHT DECREASED
     Dosage: PHENTERMINE 30MG ORAL
     Route: 048
     Dates: start: 20091201
  2. PHENTERMINE [Suspect]
     Indication: WEIGHT DECREASED
     Dosage: PHENTERMINE 30MG ORAL
     Route: 048
     Dates: start: 20091208
  3. METOPROLOL [Concomitant]
  4. HYDROCHLOROTHIAZIDE [Concomitant]
  5. FENOFIBRATE [Concomitant]

REACTIONS (4)
  - ABNORMAL BEHAVIOUR [None]
  - DELIRIUM [None]
  - HALLUCINATION, AUDITORY [None]
  - INSOMNIA [None]
